FAERS Safety Report 21965956 (Version 7)
Quarter: 2023Q2

REPORT INFORMATION
  Report Type: Report from Study
  Country: CA (occurrence: CA)
  Receive Date: 20230208
  Receipt Date: 20230612
  Transmission Date: 20230722
  Serious: Yes (Hospitalization, Other)
  Sender: FDA-Public Use
  Company Number: CA-JNJFOC-20230207429

PATIENT
  Age: 37 Year
  Sex: Male
  Weight: 78 kg

DRUGS (11)
  1. REMICADE [Suspect]
     Active Substance: INFLIXIMAB
     Indication: Colitis ulcerative
     Dosage: THERAPY START DATE: 21/JAN/2023 AND 17/JAN/2023
     Route: 042
  2. REMICADE [Suspect]
     Active Substance: INFLIXIMAB
     Route: 042
  3. REMICADE [Suspect]
     Active Substance: INFLIXIMAB
     Route: 042
  4. REMICADE [Suspect]
     Active Substance: INFLIXIMAB
     Route: 042
  5. PREDNISONE [Concomitant]
     Active Substance: PREDNISONE
     Indication: Product used for unknown indication
     Route: 065
  6. PREDNISONE [Concomitant]
     Active Substance: PREDNISONE
     Dosage: WEANED
     Route: 065
     Dates: end: 20230419
  7. PAROXETINE [Concomitant]
     Active Substance: PAROXETINE
     Indication: Product used for unknown indication
     Route: 065
  8. FERROUS FUMARATE [Concomitant]
     Active Substance: FERROUS FUMARATE
     Indication: Product used for unknown indication
     Route: 065
  9. VENTOLIN [Concomitant]
     Active Substance: ALBUTEROL SULFATE
     Indication: Product used for unknown indication
     Dosage: AS REQUIRED
     Route: 065
  10. FLOVENT [Concomitant]
     Active Substance: FLUTICASONE PROPIONATE
     Indication: Product used for unknown indication
     Dosage: AS REQUIRED
     Route: 065
  11. VITAMINS [Concomitant]
     Active Substance: VITAMINS
     Indication: Product used for unknown indication
     Route: 065

REACTIONS (16)
  - Clostridium difficile infection [Recovered/Resolved]
  - Hospitalisation [Unknown]
  - Thrombosis [Recovered/Resolved]
  - Haematochezia [Not Recovered/Not Resolved]
  - Drug specific antibody present [Unknown]
  - Phlebosclerosis [Recovered/Resolved]
  - Abnormal faeces [Recovering/Resolving]
  - Defaecation urgency [Recovering/Resolving]
  - Tachycardia [Recovering/Resolving]
  - Anxiety [Unknown]
  - Contusion [Unknown]
  - Alopecia [Recovering/Resolving]
  - Frequent bowel movements [Recovering/Resolving]
  - Diarrhoea [Not Recovered/Not Resolved]
  - Pain [Unknown]
  - Drug ineffective [Unknown]

NARRATIVE: CASE EVENT DATE: 20221101
